FAERS Safety Report 19005680 (Version 1)
Quarter: 2021Q1

REPORT INFORMATION
  Report Type: Spontaneous
  Country: RU (occurrence: RU)
  Receive Date: 20210313
  Receipt Date: 20210313
  Transmission Date: 20210420
  Serious: Yes (Other)
  Sender: FDA-Public Use
  Company Number: RU-MYLANLABS-2021M1015374

PATIENT
  Age: 77 Year
  Sex: Female

DRUGS (3)
  1. CLOPIDOGREL [Suspect]
     Active Substance: CLOPIDOGREL BISULFATE
     Indication: ANTIPLATELET THERAPY
     Dosage: 75 MILLIGRAM, BID
  2. ACETYLSALICYLIC ACID [Suspect]
     Active Substance: ASPIRIN
     Indication: ANTIPLATELET THERAPY
     Dosage: 75 MILLIGRAM, QD
     Route: 065
  3. FONDAPARINUX [Suspect]
     Active Substance: FONDAPARINUX
     Indication: ANTICOAGULANT THERAPY
     Dosage: 2.5 MILLIGRAM, QD (DURATION 8 DAYS)
     Route: 058

REACTIONS (2)
  - Myocardial ischaemia [Recovering/Resolving]
  - Angina pectoris [Recovering/Resolving]
